FAERS Safety Report 8798327 (Version 2)
Quarter: 2012Q4

REPORT INFORMATION
  Report Type: 
  Country: NL (occurrence: NL)
  Receive Date: 20120920
  Receipt Date: 20121114
  Transmission Date: 20130627
  Serious: Yes (Death, Hospitalization, Other)
  Sender: FDA-Public Use
  Company Number: NL-ELI_LILLY_AND_COMPANY-NL201209002773

PATIENT
  Sex: Male

DRUGS (1)
  1. FORSTEO [Suspect]
     Dosage: UNK
     Route: 065

REACTIONS (12)
  - Shock haemorrhagic [Fatal]
  - Renal failure acute [Fatal]
  - Small intestinal haemorrhage [Fatal]
  - Cardiogenic shock [Fatal]
  - Right ventricular failure [Fatal]
  - Azotaemia [Unknown]
  - Respiratory failure [Unknown]
  - Melaena [Unknown]
  - Hepatic cirrhosis [Unknown]
  - Blood lactic acid decreased [Unknown]
  - Blood urea decreased [Unknown]
  - Dilatation ventricular [Unknown]
